FAERS Safety Report 9271322 (Version 4)
Quarter: 2013Q3

REPORT INFORMATION
  Report Type: Report from Study
  Country: BR (occurrence: BR)
  Receive Date: 20130506
  Receipt Date: 20130806
  Transmission Date: 20140515
  Serious: Yes (Hospitalization)
  Sender: FDA-Public Use
  Company Number: BR-SANOFI-AVENTIS-2013SA044311

PATIENT
  Age: 54 Year
  Sex: Male
  Weight: 107.1 kg

DRUGS (7)
  1. INSULIN GLARGINE [Suspect]
     Indication: TYPE 2 DIABETES MELLITUS
     Dates: start: 20130320, end: 20130423
  2. INSULIN GLULISINE [Suspect]
     Indication: TYPE 2 DIABETES MELLITUS
     Dates: start: 20130320, end: 20130426
  3. LOSARTAN [Concomitant]
     Indication: HYPERTENSION
     Route: 048
     Dates: start: 201203
  4. NATRILIX - SLOW RELEASE [Concomitant]
     Indication: HYPERTENSION
     Route: 048
     Dates: start: 201007
  5. AMLODIPINE [Concomitant]
     Indication: HYPERTENSION
     Route: 048
     Dates: start: 201107
  6. ATORVASTATIN [Concomitant]
     Indication: DYSLIPIDAEMIA
     Route: 048
     Dates: start: 2009
  7. ASA [Concomitant]
     Indication: PROPHYLAXIS
     Route: 048
     Dates: start: 2001

REACTIONS (2)
  - Visceral leishmaniasis [Recovering/Resolving]
  - Renal failure acute [Recovered/Resolved]
